FAERS Safety Report 12047115 (Version 2)
Quarter: 2019Q1

REPORT INFORMATION
  Report Type: Spontaneous
  Country: US (occurrence: US)
  Receive Date: 20160208
  Receipt Date: 20190204
  Transmission Date: 20190417
  Serious: No
  Sender: FDA-Public Use
  Company Number: US-PFIZER INC-2016063017

PATIENT
  Age: 27 Year
  Sex: Male

DRUGS (6)
  1. VIAGRA [Suspect]
     Active Substance: SILDENAFIL CITRATE
     Indication: ERECTILE DYSFUNCTION
     Dosage: 100 MG, AS NEEDED
     Route: 048
     Dates: start: 20150805
  2. VIAGRA [Suspect]
     Active Substance: SILDENAFIL CITRATE
     Indication: URGE INCONTINENCE
  3. BACLOFEN. [Concomitant]
     Active Substance: BACLOFEN
     Dosage: 10 MG, UNK
     Route: 048
  4. XARELTO [Concomitant]
     Active Substance: RIVAROXABAN
     Dosage: 100 MG, UNK
     Route: 048
  5. SENNA LAXATIVE [Concomitant]
     Active Substance: SENNOSIDES
     Dosage: 25 MG, UNK
     Route: 048
  6. DITROPAN XL [Concomitant]
     Active Substance: OXYBUTYNIN CHLORIDE
     Dosage: 15 MG, 1X/DAY
     Route: 048
     Dates: start: 20150105

REACTIONS (1)
  - Drug effect incomplete [Unknown]
